FAERS Safety Report 25893449 (Version 2)
Quarter: 2025Q4

REPORT INFORMATION
  Report Type: Spontaneous
  Country: CA (occurrence: CA)
  Receive Date: 20251008
  Receipt Date: 20251021
  Transmission Date: 20260118
  Serious: Yes (Other)
  Sender: CELLTRION
  Company Number: CA-CELLTRION INC.-2025CA035622

PATIENT

DRUGS (1)
  1. INFLIXIMAB [Suspect]
     Active Substance: INFLIXIMAB
     Indication: Crohn^s disease
     Dosage: REMDANTRY - MAINTENANCE - 300 MG - IV  (INTRAVENOUS) EVERY 5 WEEKS
     Route: 042
     Dates: start: 20250512

REACTIONS (5)
  - Neck surgery [Unknown]
  - Abdominal pain upper [Unknown]
  - Diarrhoea [Unknown]
  - Intentional dose omission [Unknown]
  - Off label use [Unknown]

NARRATIVE: CASE EVENT DATE: 20250101
